FAERS Safety Report 7075202-9 (Version None)
Quarter: 2010Q4

REPORT INFORMATION
  Report Type: 
  Country: None (occurrence: None)
  Receive Date: 20101030
  Receipt Date: 20100525
  Transmission Date: 20110411
  Serious: No
  Sender: FDA-Public Use
  Company Number: US-WYE-H15433210

PATIENT
  Age: 80 Year
  Sex: Female

DRUGS (1)
  1. ADVIL PM [Suspect]
     Dosage: TOOK ONE CAPLET X 1
     Route: 048

REACTIONS (2)
  - DRUG EFFECT PROLONGED [None]
  - SOMNOLENCE [None]
